FAERS Safety Report 21930678 (Version 2)
Quarter: 2023Q1

REPORT INFORMATION
  Report Type: Spontaneous
  Country: ES (occurrence: ES)
  Receive Date: 20230131
  Receipt Date: 20230208
  Transmission Date: 20230418
  Serious: Yes (Other)
  Sender: FDA-Public Use
  Company Number: ES-002147023-NVSC2023ES016477

PATIENT
  Age: 54 Year
  Sex: Female

DRUGS (2)
  1. PEMETREXED DISODIUM [Suspect]
     Active Substance: PEMETREXED DISODIUM
     Indication: Epithelioid mesothelioma
     Dosage: 6 CYCLES
     Route: 042
  2. CISPLATIN [Suspect]
     Active Substance: CISPLATIN
     Indication: Epithelioid mesothelioma
     Dosage: 6 CYCLES
     Route: 042

REACTIONS (4)
  - Neurotoxicity [Unknown]
  - Epithelioid mesothelioma [Unknown]
  - Malignant neoplasm progression [Unknown]
  - Metastases to skin [Unknown]
